FAERS Safety Report 9121424 (Version 1)
Quarter: 2013Q1

REPORT INFORMATION
  Report Type: Spontaneous
  Country: US (occurrence: US)
  Receive Date: 20130225
  Receipt Date: 20130225
  Transmission Date: 20140127
  Serious: No
  Sender: FDA-Public Use
  Company Number: US-PFIZER INC-2013068246

PATIENT
  Age: 39 Year
  Sex: Female
  Weight: 97.51 kg

DRUGS (4)
  1. LYRICA [Suspect]
     Indication: NERVE INJURY
     Dosage: 50 MG, 3X/DAY
     Route: 048
     Dates: start: 20130130
  2. LYRICA [Interacting]
     Indication: NEURALGIA
  3. XANAX [Interacting]
     Indication: ANXIETY
     Dosage: 1 MG, 3X/DAY
     Route: 048
  4. ELMIRON [Concomitant]
     Indication: CYSTITIS INTERSTITIAL
     Dosage: 200 MG, 2X/DAY

REACTIONS (4)
  - Feeling abnormal [Not Recovered/Not Resolved]
  - Disturbance in attention [Not Recovered/Not Resolved]
  - Drug interaction [Unknown]
  - Drug ineffective [Not Recovered/Not Resolved]
